FAERS Safety Report 7175970-1 (Version None)
Quarter: 2010Q4

REPORT INFORMATION
  Report Type: 
  Country: None (occurrence: None)
  Receive Date: 20101220
  Receipt Date: 20101206
  Transmission Date: 20110411
  Serious: Yes (Other)
  Sender: FDA-Public Use
  Company Number: US-BIOGENIDEC-2010BI043626

PATIENT
  Sex: Female
  Weight: 104 kg

DRUGS (19)
  1. AVONEX [Suspect]
     Indication: MULTIPLE SCLEROSIS
     Route: 030
  2. COPAXONE [Concomitant]
  3. HYZAAR [Concomitant]
  4. PROTONIX [Concomitant]
  5. VIVELLE [Concomitant]
  6. DETROL [Concomitant]
  7. VITAMIN D [Concomitant]
  8. DRAMAMINE [Concomitant]
  9. DARVOCET [Concomitant]
  10. MOTRIN [Concomitant]
  11. CLARITIN [Concomitant]
  12. MUCINEX [Concomitant]
  13. SEREVENT [Concomitant]
     Route: 055
  14. CORRECTOL [Concomitant]
  15. PEPTO-BISMOL [Concomitant]
  16. AMBIEN [Concomitant]
  17. FLEXOR PAIN PATCH [Concomitant]
  18. VITAMIN B-12 [Concomitant]
  19. NAPROSYN [Concomitant]

REACTIONS (2)
  - CHOLECYSTECTOMY [None]
  - UTERINE CANCER [None]
